FAERS Safety Report 10992329 (Version 1)
Quarter: 2015Q2

REPORT INFORMATION
  Report Type: Spontaneous
  Country: IL (occurrence: IL)
  Receive Date: 20150406
  Receipt Date: 20150406
  Transmission Date: 20150821
  Serious: Yes (Hospitalization, Other)
  Sender: FDA-Public Use
  Company Number: PHHY2015IL037215

PATIENT
  Age: 40 Year
  Sex: Male

DRUGS (1)
  1. RITALINE [Suspect]
     Active Substance: METHYLPHENIDATE HYDROCHLORIDE
     Indication: PRODUCT USED FOR UNKNOWN INDICATION
     Dosage: 30 MG, UNK
     Route: 042

REACTIONS (4)
  - Incorrect route of drug administration [Unknown]
  - Acute myocardial infarction [Recovered/Resolved]
  - Drug abuse [Unknown]
  - Chest pain [Recovered/Resolved]
